FAERS Safety Report 5233202-5 (Version None)
Quarter: 2007Q1

REPORT INFORMATION
  Report Type: 
  Country: None (occurrence: None)
  Receive Date: 20070207
  Receipt Date: 20070131
  Transmission Date: 20070707
  Serious: Yes (Disabling)
  Sender: FDA-Public Use
  Company Number: JP-MERCK-0702USA00293

PATIENT
  Age: 78 Year
  Sex: Female

DRUGS (2)
  1. SINGULAIR [Suspect]
     Route: 048
     Dates: start: 20060414, end: 20060929
  2. MEQUITAZINE [Suspect]
     Route: 048
     Dates: start: 20060818, end: 20060925

REACTIONS (2)
  - THIRST [None]
  - TONGUE DISORDER [None]
